FAERS Safety Report 7117837-0 (Version None)
Quarter: 2010Q4

REPORT INFORMATION
  Report Type: 
  Country: None (occurrence: None)
  Receive Date: 20101118
  Receipt Date: 20101118
  Transmission Date: 20110411
  Serious: Yes (Disabling, Other)
  Sender: FDA-Public Use
  Company Number: None

PATIENT
  Age: 53 Year
  Sex: Female
  Weight: 180 kg

DRUGS (2)
  1. ABILIFY [Suspect]
     Indication: MENTAL DISORDER
     Dosage: 5 MG ORAL
     Route: 048
  2. TRIAMTERENE [Suspect]

REACTIONS (7)
  - AMNESIA [None]
  - ANORECTAL DISORDER [None]
  - DYSPNOEA [None]
  - FAECAL INCONTINENCE [None]
  - HELICOBACTER GASTRITIS [None]
  - THYROID NEOPLASM [None]
  - WEIGHT INCREASED [None]
